FAERS Safety Report 9760239 (Version 1)
Quarter: 2013Q4

REPORT INFORMATION
  Report Type: Spontaneous
  Country: US (occurrence: US)
  Receive Date: 20131216
  Receipt Date: 20131216
  Transmission Date: 20140711
  Serious: No
  Sender: FDA-Public Use
  Company Number: US-GILEAD-2010-0028388

PATIENT
  Sex: Female
  Weight: 72.57 kg

DRUGS (13)
  1. LETAIRIS [Suspect]
     Indication: PULMONARY ARTERIAL HYPERTENSION
     Route: 048
     Dates: start: 20090909
  2. REVATIO [Concomitant]
  3. SUBOXONE [Concomitant]
  4. OXYGEN [Concomitant]
  5. FUROSEMIDE [Concomitant]
  6. FOSAMAX [Concomitant]
  7. ASTELIN [Concomitant]
  8. LISINOPRIL [Concomitant]
  9. ADVAIR 250-50 DISKUS [Concomitant]
  10. NIFEDIPINE [Concomitant]
  11. HYDROCODONE W/APAP [Concomitant]
  12. SPIRIVA [Concomitant]
  13. OMEPRAZOLE [Concomitant]

REACTIONS (1)
  - Influenza [Unknown]
